FAERS Safety Report 9856544 (Version 1)
Quarter: 2014Q1

REPORT INFORMATION
  Report Type: Spontaneous
  Country: US (occurrence: US)
  Receive Date: 20140130
  Receipt Date: 20140130
  Transmission Date: 20141002
  Serious: No
  Sender: FDA-Public Use
  Company Number: US-PFIZER INC-2014026970

PATIENT
  Age: 55 Year
  Sex: Female

DRUGS (6)
  1. LYRICA [Suspect]
     Dosage: 100 MG, 3X/DAY
     Route: 048
  2. ZOLOFT [Concomitant]
     Dosage: UNK
  3. LIPITOR [Concomitant]
     Dosage: UNK
  4. PRO-AIR [Concomitant]
     Dosage: UNK
  5. ATENOLOL [Concomitant]
     Dosage: UNK
  6. DYAZIDE [Concomitant]
     Dosage: UNK

REACTIONS (2)
  - Pain [Unknown]
  - Memory impairment [Unknown]
